FAERS Safety Report 5852967-2 (Version None)
Quarter: 2008Q3

REPORT INFORMATION
  Report Type: 
  Country: None (occurrence: None)
  Receive Date: 20080821
  Receipt Date: 20080811
  Transmission Date: 20090109
  Serious: Yes (Hospitalization, Disabling)
  Sender: FDA-Public Use
  Company Number: JP-SANOFI-SYNTHELABO-A01200809696

PATIENT
  Age: 0 Year

DRUGS (4)
  1. KETAMINE HYDROCHLORIDE [Concomitant]
     Indication: ANAESTHESIA
     Dosage: UNK
     Route: 042
  2. ACETAMINOPHEN [Concomitant]
     Indication: PAIN
     Dosage: UNK
     Route: 065
  3. PENTAZOCINE LACTATE [Suspect]
     Indication: PAIN
     Dosage: UNK
     Route: 064
  4. BUPRENORPHINE HYDROCHLORIDE [Suspect]
     Indication: PAIN
     Dosage: UNK
     Route: 064

REACTIONS (2)
  - CEREBRAL ISCHAEMIA [None]
  - DRUG EXPOSURE DURING PREGNANCY [None]
